FAERS Safety Report 17174023 (Version 3)
Quarter: 2021Q4

REPORT INFORMATION
  Report Type: Report from Study
  Country: US (occurrence: US)
  Receive Date: 20191218
  Receipt Date: 20211113
  Transmission Date: 20220303
  Serious: No
  Sender: FDA-Public Use
  Company Number: US-NOVARTISTESTPH-NVSC2019US016152

PATIENT
  Sex: Male

DRUGS (1)
  1. GILENYA [Suspect]
     Active Substance: FINGOLIMOD HYDROCHLORIDE
     Indication: Multiple sclerosis
     Dosage: 0.5 MG, QD
     Route: 048
     Dates: start: 20170919

REACTIONS (10)
  - Fall [Unknown]
  - Vertigo [Unknown]
  - Abdominal distension [Unknown]
  - Sleep deficit [Unknown]
  - Malaise [Unknown]
  - General physical health deterioration [Unknown]
  - Dizziness [Unknown]
  - Vision blurred [Unknown]
  - Dyspnoea [Unknown]
  - Product dose omission issue [Unknown]
